FAERS Safety Report 4395208-8 (Version None)
Quarter: 2004Q3

REPORT INFORMATION
  Report Type: 
  Country: None (occurrence: None)
  Receive Date: 20040712
  Receipt Date: 20040511
  Transmission Date: 20050211
  Serious: Yes (Other)
  Sender: FDA-Public Use
  Company Number: US-MERCK-0405USA00738B1

PATIENT

DRUGS (2)
  1. ALLEGRA [Concomitant]
  2. SINGULAIR [Suspect]
     Indication: ASTHMA

REACTIONS (6)
  - CHROMOSOME ABNORMALITY [None]
  - CONGENITAL ANOMALY [None]
  - FOETAL HEART RATE ABNORMAL [None]
  - FOETAL HEART RATE DECREASED [None]
  - PREGNANCY [None]
  - ULTRASOUND ANTENATAL SCREEN ABNORMAL [None]
